FAERS Safety Report 6809646-4 (Version None)
Quarter: 2010Q2

REPORT INFORMATION
  Report Type: 
  Country: None (occurrence: None)
  Receive Date: 20100630
  Receipt Date: 20100625
  Transmission Date: 20101027
  Serious: Yes (Hospitalization, Disabling, Other)
  Sender: FDA-Public Use
  Company Number: US-PFIZER INC-2008150384

PATIENT
  Sex: Male

DRUGS (1)
  1. LIPITOR [Suspect]
     Indication: HYPERLIPIDAEMIA
     Dosage: 10 MG, 1X/DAY
     Dates: start: 20030101, end: 20080201

REACTIONS (77)
  - ABDOMINAL DISTENSION [None]
  - ABDOMINAL PAIN [None]
  - ALOPECIA [None]
  - ANXIETY DISORDER [None]
  - ASTHENIA [None]
  - ATELECTASIS [None]
  - ATTENTION DEFICIT/HYPERACTIVITY DISORDER [None]
  - BALANCE DISORDER [None]
  - BENIGN PROSTATIC HYPERPLASIA [None]
  - BIPOLAR DISORDER [None]
  - BONE DISORDER [None]
  - BRONCHITIS [None]
  - CHEST DISCOMFORT [None]
  - CHEST PAIN [None]
  - CHOREA [None]
  - COGNITIVE DISORDER [None]
  - CONFUSIONAL STATE [None]
  - CONTUSION [None]
  - CONVULSION [None]
  - COUGH [None]
  - DEPRESSION [None]
  - DYSKINESIA [None]
  - DYSPNOEA [None]
  - DYSTONIA [None]
  - EJACULATION DISORDER [None]
  - EPIDIDYMITIS [None]
  - EYE PAIN [None]
  - FATIGUE [None]
  - GAIT DISTURBANCE [None]
  - GASTROINTESTINAL DISORDER [None]
  - HEADACHE [None]
  - HELICOBACTER TEST POSITIVE [None]
  - HYPOAESTHESIA [None]
  - HYPOAESTHESIA FACIAL [None]
  - INTERVERTEBRAL DISC DEGENERATION [None]
  - IRRITABLE BOWEL SYNDROME [None]
  - LIVER INJURY [None]
  - LUNG NEOPLASM [None]
  - MALAISE [None]
  - MEMORY IMPAIRMENT [None]
  - MENTAL STATUS CHANGES [None]
  - MOVEMENT DISORDER [None]
  - MULTI-ORGAN DISORDER [None]
  - MUSCLE INJURY [None]
  - MUSCLE SPASMS [None]
  - MUSCULOSKELETAL PAIN [None]
  - MYALGIA [None]
  - MYOFASCIAL PAIN SYNDROME [None]
  - NASAL CONGESTION [None]
  - NEOPLASM [None]
  - NEPHROLITHIASIS [None]
  - NERVOUS SYSTEM DISORDER [None]
  - NEURALGIA [None]
  - NEUROPATHY PERIPHERAL [None]
  - OEDEMA PERIPHERAL [None]
  - OSTEOARTHRITIS [None]
  - OSTEOPENIA [None]
  - OTITIS MEDIA [None]
  - PAIN [None]
  - PALPITATIONS [None]
  - PARAESTHESIA [None]
  - POLYP [None]
  - POST-TRAUMATIC STRESS DISORDER [None]
  - PROSTATITIS [None]
  - PROSTATOMEGALY [None]
  - RASH ERYTHEMATOUS [None]
  - RENAL ATROPHY [None]
  - RENAL DISORDER [None]
  - SENSORY DISTURBANCE [None]
  - SINUSITIS [None]
  - SLEEP APNOEA SYNDROME [None]
  - TRANSIENT GLOBAL AMNESIA [None]
  - TRANSIENT ISCHAEMIC ATTACK [None]
  - TREMOR [None]
  - TRICUSPID VALVE INCOMPETENCE [None]
  - URINARY INCONTINENCE [None]
  - VENTRICULAR HYPOKINESIA [None]
